FAERS Safety Report 12625246 (Version 1)
Quarter: 2016Q3

REPORT INFORMATION
  Report Type: Spontaneous
  Country: FR (occurrence: FR)
  Receive Date: 20160805
  Receipt Date: 20160805
  Transmission Date: 20161109
  Serious: Yes (Death, Hospitalization)
  Sender: FDA-Public Use
  Company Number: FR-JNJFOC-20160723210

PATIENT
  Age: 80 Year
  Sex: Female

DRUGS (5)
  1. ZYLORIC [Concomitant]
     Active Substance: ALLOPURINOL
     Route: 065
  2. ZELITREX [Concomitant]
     Active Substance: VALACYCLOVIR HYDROCHLORIDE
     Route: 065
  3. IMBRUVICA [Suspect]
     Active Substance: IBRUTINIB
     Indication: MANTLE CELL LYMPHOMA
     Route: 048
     Dates: start: 20141121, end: 20150108
  4. LYRICA [Concomitant]
     Active Substance: PREGABALIN
     Dosage: IN THE EVENING
     Route: 065
  5. LAROXYL [Concomitant]
     Active Substance: AMITRIPTYLINE
     Dosage: 10 DROPS IN THE EVENING
     Route: 065

REACTIONS (2)
  - Purpura [Unknown]
  - Ecchymosis [Unknown]

NARRATIVE: CASE EVENT DATE: 20150108
